FAERS Safety Report 11693292 (Version 1)
Quarter: 2015Q4

REPORT INFORMATION
  Report Type: Spontaneous
  Country: US (occurrence: None)
  Receive Date: 20151102
  Receipt Date: 20151102
  Transmission Date: 20160304
  Serious: Yes (Life-Threatening, Other)
  Sender: FDA-Public Use
  Company Number: None

PATIENT

DRUGS (2)
  1. ACTIVOX LIFECHOICE [Suspect]
     Active Substance: DEVICE
  2. OXYGEN. [Suspect]
     Active Substance: OXYGEN

REACTIONS (4)
  - Medical device complication [None]
  - Device malfunction [None]
  - Device alarm issue [None]
  - Incorrect dose administered by device [None]

NARRATIVE: CASE EVENT DATE: 20151028
